FAERS Safety Report 6507776-8 (Version None)
Quarter: 2009Q4

REPORT INFORMATION
  Report Type: 
  Country: None (occurrence: None)
  Receive Date: 20091221
  Receipt Date: 20091211
  Transmission Date: 20100525
  Serious: Yes (Hospitalization)
  Sender: FDA-Public Use
  Company Number: JP-MERCK-0912USA02018

PATIENT
  Age: 81 Year
  Sex: Female

DRUGS (3)
  1. FOSAMAX [Suspect]
     Indication: OSTEOPOROSIS
     Route: 048
     Dates: start: 20090911, end: 20091001
  2. ALFAROL [Concomitant]
     Indication: OSTEOPOROSIS
     Route: 048
     Dates: end: 20091211
  3. GLAKAY [Concomitant]
     Indication: OSTEOPOROSIS
     Route: 048
     Dates: end: 20091211

REACTIONS (1)
  - OSTEOMYELITIS [None]
